FAERS Safety Report 14752105 (Version 1)
Quarter: 2018Q2

REPORT INFORMATION
  Report Type: Spontaneous
  Country: US (occurrence: US)
  Receive Date: 20180406
  Receipt Date: 20180406
  Transmission Date: 20180711
  Serious: No
  Sender: FDA-Public Use
  Company Number: None

PATIENT
  Sex: Female
  Weight: 88.9 kg

DRUGS (1)
  1. FORTEO [Suspect]
     Active Substance: TERIPARATIDE
     Indication: SENILE OSTEOPOROSIS
     Route: 058
     Dates: start: 201708

REACTIONS (9)
  - Urinary tract infection [None]
  - Influenza [None]
  - Sepsis [None]
  - Gallbladder disorder [None]
  - Fall [None]
  - Neoplasm malignant [None]
  - Renal disorder [None]
  - Liver disorder [None]
  - Burning sensation [None]
